FAERS Safety Report 9056247 (Version 1)
Quarter: 2013Q1

REPORT INFORMATION
  Report Type: Spontaneous
  Country: ZA (occurrence: ZA)
  Receive Date: 20130205
  Receipt Date: 20130205
  Transmission Date: 20140127
  Serious: Yes (Death)
  Sender: FDA-Public Use
  Company Number: ZA-009507513-1302ZAF000699

PATIENT
  Age: 65 Year
  Sex: Male

DRUGS (3)
  1. CANCIDAS [Suspect]
     Indication: CANDIDA INFECTION
     Dosage: 70 MG,LOADING DOSE
     Route: 042
     Dates: start: 20121128
  2. CANCIDAS [Suspect]
     Dosage: 50 MG, MAINTENANCE DOSE
     Dates: end: 20121227
  3. CORTICOSTEROIDS (UNSPECIFIED) [Concomitant]

REACTIONS (3)
  - Treatment failure [Fatal]
  - Dyspnoea [Unknown]
  - Diarrhoea [Unknown]
